FAERS Safety Report 11366181 (Version 2)
Quarter: 2016Q2

REPORT INFORMATION
  Report Type: Report from Study
  Country: KR (occurrence: KR)
  Receive Date: 20150811
  Receipt Date: 20160510
  Transmission Date: 20160815
  Serious: Yes (Other)
  Sender: FDA-Public Use
  Company Number: KR-OTSUKA-JP-2015-10319

PATIENT
  Age: 64 Year
  Sex: Female

DRUGS (4)
  1. BLINDED *PLACEBO [Suspect]
     Active Substance: INVESTIGATIONAL PRODUCT
     Dosage: 15 MG, QD
     Route: 048
     Dates: start: 20130724, end: 20130725
  2. BLINDED *PLACEBO [Suspect]
     Active Substance: INVESTIGATIONAL PRODUCT
     Indication: CONGESTIVE CARDIOMYOPATHY
     Dosage: 30 MG, QD
     Route: 048
     Dates: start: 20130726, end: 20130809
  3. BLINDED TOLVAPTAN [Suspect]
     Active Substance: TOLVAPTAN
     Indication: CONGESTIVE CARDIOMYOPATHY
     Dosage: 30 MG, QD
     Route: 048
     Dates: start: 20130726, end: 20130809
  4. BLINDED TOLVAPTAN [Suspect]
     Active Substance: TOLVAPTAN
     Dosage: 15 MG, QD
     Route: 048
     Dates: start: 20130724, end: 20130725

REACTIONS (2)
  - Blood bilirubin increased [Recovered/Resolved]
  - Heart transplant [Recovering/Resolving]

NARRATIVE: CASE EVENT DATE: 20130809
